FAERS Safety Report 13169624 (Version 2)
Quarter: 2017Q1

REPORT INFORMATION
  Report Type: Report from Study
  Country: MX (occurrence: MX)
  Receive Date: 20170201
  Receipt Date: 20170206
  Transmission Date: 20170428
  Serious: Yes (Other)
  Sender: FDA-Public Use
  Company Number: PHHY2017MX014667

PATIENT
  Sex: Female

DRUGS (3)
  1. EXELON PATCH [Suspect]
     Active Substance: RIVASTIGMINE
     Indication: DEMENTIA ALZHEIMER^S TYPE
     Dosage: 4.6 MG, PATCH 5 (CM2)
     Route: 062
  2. LOSARTAN. [Concomitant]
     Active Substance: LOSARTAN
     Indication: PRODUCT USED FOR UNKNOWN INDICATION
     Route: 065
  3. EXELON PATCH [Suspect]
     Active Substance: RIVASTIGMINE
     Dosage: 9.5 MG, PATCH 10 (CM2)
     Route: 062
     Dates: start: 2014

REACTIONS (5)
  - Drug ineffective [Unknown]
  - Clumsiness [Unknown]
  - Mobility decreased [Recovering/Resolving]
  - Altered state of consciousness [Recovering/Resolving]
  - Memory impairment [Unknown]
